FAERS Safety Report 14949268 (Version 3)
Quarter: 2018Q3

REPORT INFORMATION
  Report Type: Report from Study
  Country: US (occurrence: US)
  Receive Date: 20180529
  Receipt Date: 20180703
  Transmission Date: 20181010
  Serious: Yes (Other)
  Sender: FDA-Public Use
  Company Number: US-APOPHARMA-2018AP013991

PATIENT
  Age: 34 Year
  Sex: Female
  Weight: 53 kg

DRUGS (4)
  1. METFORMIN [Concomitant]
     Active Substance: METFORMIN HYDROCHLORIDE
     Indication: PRODUCT USED FOR UNKNOWN INDICATION
     Dosage: UNK, UNKNOWN
     Route: 065
  2. FERRIPROX [Suspect]
     Active Substance: DEFERIPRONE
     Indication: HAEMOCHROMATOSIS
     Dosage: 28.3 MG/KG, TID
     Route: 048
     Dates: start: 20180104, end: 20180214
  3. FERRIPROX [Suspect]
     Active Substance: DEFERIPRONE
     Indication: CONGENITAL APLASTIC ANAEMIA
     Dosage: 28.3 MG/KG, TID
     Route: 048
     Dates: start: 201804, end: 201805
  4. JADENU [Suspect]
     Active Substance: DEFERASIROX
     Indication: PRODUCT USED FOR UNKNOWN INDICATION
     Dosage: UNK, UNKNOWN
     Route: 065

REACTIONS (1)
  - White blood cell count decreased [Recovered/Resolved]

NARRATIVE: CASE EVENT DATE: 201805
